FAERS Safety Report 11924530 (Version 2)
Quarter: 2016Q1

REPORT INFORMATION
  Report Type: Spontaneous
  Country: FR (occurrence: FR)
  Receive Date: 20160118
  Receipt Date: 20160118
  Transmission Date: 20160526
  Serious: Yes (Hospitalization, Other)
  Sender: FDA-Public Use
  Company Number: FR-GE HEALTHCARE MEDICAL DIAGNOSTICS-OMPQ-PR-1601S-0008

PATIENT
  Age: 43 Year
  Sex: Male

DRUGS (9)
  1. OMNIPAQUE [Suspect]
     Active Substance: IOHEXOL
     Dosage: DOSE NOT REPORTED
     Route: 042
     Dates: start: 20150408, end: 20150408
  2. PARACETAMOL [Suspect]
     Active Substance: ACETAMINOPHEN
     Route: 048
     Dates: start: 20150316, end: 20150402
  3. SPASFON [Suspect]
     Active Substance: PHLOROGLUCINOL
     Route: 048
     Dates: start: 20150316, end: 20150331
  4. OMNIPAQUE [Suspect]
     Active Substance: IOHEXOL
     Indication: DIAGNOSTIC PROCEDURE
     Dosage: DOSE NOT REPORTED
     Route: 042
     Dates: start: 20150331, end: 20150331
  5. OMNIPAQUE [Suspect]
     Active Substance: IOHEXOL
     Dosage: DOSE NOT REPORTED
     Route: 042
     Dates: start: 20150401, end: 20150401
  6. LOVENOX [Suspect]
     Active Substance: ENOXAPARIN SODIUM
     Route: 058
     Dates: start: 20150316, end: 20150402
  7. DITROPAN [Concomitant]
     Active Substance: OXYBUTYNIN CHLORIDE
     Dates: start: 20150330
  8. STILNOX [Suspect]
     Active Substance: ZOLPIDEM TARTRATE
     Route: 048
     Dates: start: 20150316, end: 20150331
  9. OMNIPAQUE [Suspect]
     Active Substance: IOHEXOL
     Indication: TRAUMATIC RENAL INJURY
     Dosage: DOSE NOT REPORTED
     Route: 042
     Dates: start: 20150325, end: 20150325

REACTIONS (1)
  - Drug reaction with eosinophilia and systemic symptoms [Recovered/Resolved]

NARRATIVE: CASE EVENT DATE: 20150329
